FAERS Safety Report 4279626-4 (Version None)
Quarter: 2004Q1

REPORT INFORMATION
  Report Type: 
  Country: None (occurrence: None)
  Receive Date: 20040123
  Receipt Date: 20040115
  Transmission Date: 20041129
  Serious: Yes (Death)
  Sender: FDA-Public Use
  Company Number: JP-JNJFOC-20040103128

PATIENT
  Age: 73 Year
  Sex: Male

DRUGS (17)
  1. FENTANYL [Suspect]
     Indication: CANCER PAIN
     Dosage: SEE IMAGE
     Route: 062
     Dates: start: 20031127, end: 20031130
  2. FENTANYL [Suspect]
     Indication: CANCER PAIN
     Dosage: SEE IMAGE
     Route: 062
     Dates: start: 20031130, end: 20031206
  3. FENTANYL [Suspect]
     Indication: CANCER PAIN
     Dosage: SEE IMAGE
     Route: 062
     Dates: start: 20031206, end: 20031212
  4. FENTANYL [Suspect]
     Indication: CANCER PAIN
     Dosage: SEE IMAGE
     Route: 062
     Dates: start: 20031212, end: 20031215
  5. FENTANYL [Suspect]
     Indication: CANCER PAIN
     Dosage: SEE IMAGE
     Route: 062
     Dates: start: 20031215, end: 20031218
  6. ZOLPIDEM TARTRATE (ZOLPIDE TARTRATE) [Concomitant]
  7. SENNOSIDE (ALL OTHER THERAPEUTIC  PRODUCTS) [Concomitant]
  8. AMINOFLUID (AMINOFLUID) [Concomitant]
  9. GLYCERIN (GLYCEROL) [Concomitant]
  10. SODIUM BICARBONATE IN PLASTIC CONTAINER [Concomitant]
  11. DEXTROMETHOPHAN HYDROBROMIDE (DEXTROMETHOPHAN HYDROBROMIDE) [Concomitant]
  12. LEVOFLOXACIN [Concomitant]
  13. PANTETHINE (PANETHINE) [Concomitant]
  14. MAGNESIUM OXIDE (MAGNESIUM OXIDE) [Concomitant]
  15. PN (ALL OTHER THERAPEUTIC PRODUCTS) [Concomitant]
  16. MORPHINE HYDROCHLORIDE (MORPHINE HYDROCHLORIDE) [Concomitant]
  17. SOLITA -T3G (SOLITA T2 GRANULATE) [Concomitant]

REACTIONS (1)
  - DEATH [None]
